FAERS Safety Report 19073228 (Version 1)
Quarter: 2021Q1

REPORT INFORMATION
  Report Type: Spontaneous
  Country: US (occurrence: US)
  Receive Date: 20210330
  Receipt Date: 20210330
  Transmission Date: 20210420
  Serious: Yes (Hospitalization)
  Sender: FDA-Public Use
  Company Number: None

PATIENT
  Age: 84 Year
  Sex: Male

DRUGS (10)
  1. METOPROLOL. [Concomitant]
     Active Substance: METOPROLOL
  2. DEFERASIROX. [Suspect]
     Active Substance: DEFERASIROX
     Indication: HAEMATOPOIETIC NEOPLASM
     Route: 048
     Dates: start: 20190509
  3. PREDNISONE. [Concomitant]
     Active Substance: PREDNISONE
  4. DEFERASIROX. [Suspect]
     Active Substance: DEFERASIROX
     Indication: MALIGNANT LYMPHOID NEOPLASM
     Route: 048
     Dates: start: 20190509
  5. JANUVIA [Concomitant]
     Active Substance: SITAGLIPTIN PHOSPHATE
  6. LEVOTHYROXINE. [Concomitant]
     Active Substance: LEVOTHYROXINE
  7. ALLOPURINOL. [Concomitant]
     Active Substance: ALLOPURINOL
  8. RENAL [Concomitant]
  9. EXJADE [Concomitant]
     Active Substance: DEFERASIROX
  10. COLESEVLAM [Concomitant]

REACTIONS (1)
  - Hospitalisation [None]

NARRATIVE: CASE EVENT DATE: 20210325
